FAERS Safety Report 5018796-7 (Version None)
Quarter: 2006Q2

REPORT INFORMATION
  Report Type: 
  Country: None (occurrence: None)
  Receive Date: 20060606
  Receipt Date: 20060524
  Transmission Date: 20061013
  Serious: Yes (Hospitalization, Other)
  Sender: FDA-Public Use
  Company Number: PHEH2006US06827

PATIENT
  Age: 61 Year
  Sex: Female

DRUGS (3)
  1. FEMARA [Suspect]
     Indication: BREAST CANCER
  2. HERCEPTIN [Suspect]
     Indication: BREAST CANCER
     Dates: start: 20050801, end: 20051122
  3. RADIATION THERAPY [Suspect]
     Indication: BREAST CANCER

REACTIONS (5)
  - ALOPECIA [None]
  - ARTHRALGIA [None]
  - MASTECTOMY [None]
  - RADIATION PNEUMONITIS [None]
  - RASH PRURITIC [None]
